FAERS Safety Report 5614250-X (Version None)
Quarter: 2008Q1

REPORT INFORMATION
  Report Type: 
  Country: None (occurrence: None)
  Receive Date: 20080111
  Receipt Date: 20070409
  Transmission Date: 20080703
  Serious: Yes (Other)
  Sender: FDA-Public Use
  Company Number: HQWYE607205MAR04

PATIENT
  Age: 57 Year
  Sex: Female
  Weight: 58.57 kg

DRUGS (1)
  1. PREMPRO [Suspect]
     Indication: HORMONE REPLACEMENT THERAPY
     Dosage: 1 TABLET DAILY, ORAL
     Route: 048
     Dates: start: 19981101, end: 20010801

REACTIONS (1)
  - CEREBROVASCULAR ACCIDENT [None]
